FAERS Safety Report 6877169-2 (Version None)
Quarter: 2010Q3

REPORT INFORMATION
  Report Type: 
  Country: None (occurrence: None)
  Receive Date: 20100727
  Receipt Date: 20100715
  Transmission Date: 20110219
  Serious: Yes (Other)
  Sender: FDA-Public Use
  Company Number: US-WATSON-2010-09389

PATIENT
  Age: 80 Year
  Sex: Female

DRUGS (2)
  1. ALENDRONATE SODIUM (WATSON LABORATORIES) [Suspect]
     Indication: OSTEOPOROSIS PROPHYLAXIS
     Dosage: 70 MG, 1/WEEK
     Route: 048
     Dates: start: 20100624
  2. ALENDRONATE SODIUM (WATSON LABORATORIES) [Suspect]
     Dosage: 70 MG, 1/WEEK
     Route: 048

REACTIONS (3)
  - FALL [None]
  - MYALGIA [None]
  - UPPER LIMB FRACTURE [None]
